FAERS Safety Report 22600457 (Version 2)
Quarter: 2023Q2

REPORT INFORMATION
  Report Type: Spontaneous
  Country: JP (occurrence: JP)
  Receive Date: 20230614
  Receipt Date: 20230628
  Transmission Date: 20230721
  Serious: Yes (Hospitalization)
  Sender: FDA-Public Use
  Company Number: JP-ELI_LILLY_AND_COMPANY-JP202305015365

PATIENT
  Age: 75 Year
  Sex: Male

DRUGS (10)
  1. CYRAMZA [Suspect]
     Active Substance: RAMUCIRUMAB
     Indication: Gastric cancer recurrent
     Dosage: 8 MG/KG, CYCLICAL
     Route: 041
     Dates: start: 20230112
  2. PACLITAXEL [Suspect]
     Active Substance: PACLITAXEL
     Indication: Gastric cancer recurrent
     Dosage: 80 MG/M2, CYCLICAL
     Route: 041
     Dates: start: 20230112
  3. OLMESARTAN [Suspect]
     Active Substance: OLMESARTAN
     Indication: Hypertension
     Dosage: 10 MG
     Route: 048
  4. AMLODIPINE [Suspect]
     Active Substance: AMLODIPINE BESYLATE
     Indication: Hypertension
     Dosage: 2.5 MG
     Route: 048
  5. ETODOLAC [Concomitant]
     Active Substance: ETODOLAC
     Dosage: 200 MG, BID
  6. EPLERENONE [Concomitant]
     Active Substance: EPLERENONE
     Dosage: 50 MG
  7. RABEPRAZOLE SODIUM [Concomitant]
     Active Substance: RABEPRAZOLE SODIUM
     Dosage: 10 MG
  8. SENNOSIDE A [Concomitant]
     Active Substance: SENNOSIDE A
     Dosage: 24 MG, PRN
  9. CLOPIDOGREL [Concomitant]
     Active Substance: CLOPIDOGREL BISULFATE
     Dosage: 75 MG, DAILY
     Dates: end: 202305
  10. ZINC [Concomitant]
     Active Substance: ZINC
     Dosage: 100 MG, BID

REACTIONS (2)
  - Anal ulcer [Recovering/Resolving]
  - Pyrexia [Unknown]

NARRATIVE: CASE EVENT DATE: 20230506
